FAERS Safety Report 7311227-3 (Version None)
Quarter: 2011Q1

REPORT INFORMATION
  Report Type: 
  Country: None (occurrence: None)
  Receive Date: 20110210
  Receipt Date: 20110128
  Transmission Date: 20110831
  Serious: Yes (Death)
  Sender: FDA-Public Use
  Company Number: AE11-016-5

PATIENT
  Age: 30 Year
  Sex: Male

DRUGS (4)
  1. LORCET (HYDROCODONE/ACETAMINOPHEN) [Suspect]
  2. ZOLPIDEM [Suspect]
  3. CARISOPRODOL [Suspect]
  4. METHADONE [Suspect]

REACTIONS (3)
  - MULTIPLE DRUG OVERDOSE INTENTIONAL [None]
  - COMPLETED SUICIDE [None]
  - CARDIO-RESPIRATORY ARREST [None]
